FAERS Safety Report 11358692 (Version 3)
Quarter: 2015Q4

REPORT INFORMATION
  Report Type: Report from Study
  Country: US (occurrence: US)
  Receive Date: 20150810
  Receipt Date: 20151028
  Transmission Date: 20160304
  Serious: No
  Sender: FDA-Public Use
  Company Number: US-ALEXION-A201502948

PATIENT
  Sex: Male

DRUGS (1)
  1. SOLIRIS [Suspect]
     Active Substance: ECULIZUMAB
     Indication: HAEMOLYTIC URAEMIC SYNDROME
     Dosage: UNK
     Route: 042

REACTIONS (7)
  - Dyspnoea [Unknown]
  - Renal pain [Unknown]
  - Peripheral swelling [Unknown]
  - Throat tightness [Unknown]
  - Chest discomfort [Unknown]
  - Dizziness [Unknown]
  - Urticaria [Unknown]
